FAERS Safety Report 4544448-3 (Version None)
Quarter: 2004Q4

REPORT INFORMATION
  Report Type: 
  Country: None (occurrence: None)
  Receive Date: 20041230
  Receipt Date: 20041222
  Transmission Date: 20050328
  Serious: Yes (Other)
  Sender: FDA-Public Use
  Company Number: 2004-12-1228

PATIENT
  Age: 52 Year
  Sex: Male

DRUGS (4)
  1. REBETOL [Suspect]
     Indication: HEPATITIS C
     Dosage: 600 MG ORAL
     Route: 048
     Dates: start: 20021105, end: 20021101
  2. INTRON A [Suspect]
     Indication: HEPATITIS C
     Dosage: SEE IMAGE, INTRAMUSCULAR
     Route: 030
     Dates: start: 20021105, end: 20021101
  3. INTRON A [Suspect]
     Indication: HEPATITIS C
     Dosage: SEE IMAGE, INTRAMUSCULAR
     Route: 030
     Dates: start: 20021105
  4. INTRON A [Suspect]
     Indication: HEPATITIS C
     Dosage: SEE IMAGE, INTRAMUSCULAR
     Route: 030
     Dates: start: 20021125

REACTIONS (1)
  - AGRANULOCYTOSIS [None]
